FAERS Safety Report 25675560 (Version 1)
Quarter: 2025Q3

REPORT INFORMATION
  Report Type: Spontaneous
  Country: TN (occurrence: TN)
  Receive Date: 20250813
  Receipt Date: 20250813
  Transmission Date: 20251020
  Serious: Yes (Hospitalization, Other)
  Sender: STRIDES
  Company Number: None

PATIENT
  Age: 40 Hour
  Sex: Female

DRUGS (3)
  1. FLUOXETINE [Suspect]
     Active Substance: FLUOXETINE HYDROCHLORIDE
     Indication: Product used for unknown indication
     Route: 064
  2. INSULIN NOS [Suspect]
     Active Substance: INSULIN NOS
     Indication: Product used for unknown indication
     Route: 064
  3. OXYGEN [Concomitant]
     Active Substance: OXYGEN
     Indication: Respiratory distress
     Route: 065

REACTIONS (8)
  - Drug withdrawal syndrome neonatal [Recovered/Resolved]
  - Electroencephalogram abnormal [Recovered/Resolved]
  - Muscle spasms [Recovered/Resolved]
  - Myoclonus [Recovered/Resolved]
  - Premature baby [Unknown]
  - Neonatal seizure [Recovered/Resolved]
  - Irritability [Recovered/Resolved]
  - Foetal exposure during pregnancy [Unknown]
